FAERS Safety Report 6392166-1 (Version None)
Quarter: 2009Q4

REPORT INFORMATION
  Report Type: 
  Country: None (occurrence: None)
  Receive Date: 20091005
  Receipt Date: 20090915
  Transmission Date: 20100525
  Serious: Yes (Hospitalization)
  Sender: FDA-Public Use
  Company Number: 8052362

PATIENT
  Age: 21 Year
  Sex: Female

DRUGS (2)
  1. KEPPRA [Suspect]
     Dates: start: 20090601
  2. LAMOTRIGINE [Concomitant]

REACTIONS (3)
  - ABASIA [None]
  - CONVULSION [None]
  - SPEECH DISORDER [None]
